FAERS Safety Report 19737976 (Version 5)
Quarter: 2021Q4

REPORT INFORMATION
  Report Type: Spontaneous
  Country: US (occurrence: US)
  Receive Date: 20210823
  Receipt Date: 20211229
  Transmission Date: 20220303
  Serious: Yes (Other)
  Sender: FDA-Public Use
  Company Number: US-SA-SAC20210819000219

PATIENT
  Age: 33 Year
  Sex: Male

DRUGS (4)
  1. ELOCTATE [Suspect]
     Active Substance: (1-743)-(1638-2332)-BLOOD-COAGULATION FACTOR VIII (SYNTHETIC HUMAN) FUSION PROTEIN WITH IMMUNOGLOBUL
     Indication: Haemorrhage
     Dosage: DOSE: 5500 AND/OR 3330 UNITS
     Route: 042
  2. ELOCTATE [Suspect]
     Active Substance: (1-743)-(1638-2332)-BLOOD-COAGULATION FACTOR VIII (SYNTHETIC HUMAN) FUSION PROTEIN WITH IMMUNOGLOBUL
     Indication: Haemorrhage
     Dosage: DOSE: 5500 AND/OR 3330 UNITS
     Route: 042
  3. ELOCTATE [Suspect]
     Active Substance: (1-743)-(1638-2332)-BLOOD-COAGULATION FACTOR VIII (SYNTHETIC HUMAN) FUSION PROTEIN WITH IMMUNOGLOBUL
     Indication: Prophylaxis
     Dosage: 5500 U, EVERY 4 DAYS PROPHYLACTICL AS NEEDED
     Route: 042
  4. ELOCTATE [Suspect]
     Active Substance: (1-743)-(1638-2332)-BLOOD-COAGULATION FACTOR VIII (SYNTHETIC HUMAN) FUSION PROTEIN WITH IMMUNOGLOBUL
     Indication: Prophylaxis
     Dosage: 5500 U, EVERY 4 DAYS PROPHYLACTICL AS NEEDED
     Route: 042

REACTIONS (4)
  - Haemorrhage [Recovered/Resolved]
  - Limb injury [Unknown]
  - Drug ineffective [Unknown]
  - Surgery [Unknown]

NARRATIVE: CASE EVENT DATE: 20210816
